FAERS Safety Report 22342338 (Version 1)
Quarter: 2023Q2

REPORT INFORMATION
  Report Type: Spontaneous
  Country: US (occurrence: US)
  Receive Date: 20230519
  Receipt Date: 20230519
  Transmission Date: 20230722
  Serious: No
  Sender: FDA-Public Use
  Company Number: US-BRISTOL-MYERS SQUIBB COMPANY-2023-069320

PATIENT
  Age: 42 Year
  Sex: Female
  Weight: 57.61 kg

DRUGS (1)
  1. KENALOG [Suspect]
     Active Substance: TRIAMCINOLONE ACETONIDE
     Indication: Cyst
     Dosage: FREQUENCY: 1 UNIQUE ADMINISTRATION
     Dates: start: 20230322, end: 20230322

REACTIONS (2)
  - Eye disorder [Unknown]
  - Injection site inflammation [Unknown]

NARRATIVE: CASE EVENT DATE: 20230322
